FAERS Safety Report 4394904-6 (Version None)
Quarter: 2004Q3

REPORT INFORMATION
  Report Type: 
  Country: None (occurrence: None)
  Receive Date: 20040706
  Receipt Date: 20040621
  Transmission Date: 20050211
  Serious: Yes (Life-Threatening)
  Sender: FDA-Public Use
  Company Number: 2004042616

PATIENT
  Age: 57 Year
  Sex: Female

DRUGS (5)
  1. ZIPRASIDONE (CAPS) (ZIPRASIDONE) [Suspect]
     Indication: BIPOLAR DISORDER
     Dosage: (160 MG), ORAL
     Route: 048
  2. CLOMETHIAZOLE (CLOMETHIAZOLE) [Suspect]
     Indication: ILL-DEFINED DISORDER
     Dosage: (384 MG)
  3. FLUNITRAZEPAM (FLUNITRAZEPAM) [Suspect]
     Indication: ILL-DEFINED DISORDER
     Dosage: (2 MG)
  4. PAROXETINE HCL [Concomitant]
  5. LORAZEPAM [Concomitant]

REACTIONS (9)
  - ANXIETY [None]
  - BLOOD PRESSURE INCREASED [None]
  - BLOOD PROLACTIN DECREASED [None]
  - ELECTROCARDIOGRAM QT CORRECTED INTERVAL PROLONGED [None]
  - HEART RATE INCREASED [None]
  - MULTIPLE DRUG OVERDOSE [None]
  - OXYGEN SATURATION DECREASED [None]
  - SOMNOLENCE [None]
  - TREMOR [None]
